FAERS Safety Report 6694934-5 (Version None)
Quarter: 2010Q2

REPORT INFORMATION
  Report Type: 
  Country: None (occurrence: None)
  Receive Date: 20100423
  Receipt Date: 20100412
  Transmission Date: 20101027
  Serious: No
  Sender: FDA-Public Use
  Company Number: US-ELI_LILLY_AND_COMPANY-US201003002149

PATIENT
  Age: 72 Year
  Sex: Female

DRUGS (7)
  1. CYMBALTA [Suspect]
     Indication: DEPRESSION
     Dosage: 60 MG, EACH EVENING
     Route: 065
     Dates: start: 20090219
  2. CYMBALTA [Suspect]
     Dosage: 30 MG, DAILY (1/D)
     Dates: start: 20100308
  3. LISINOPRIL [Concomitant]
     Dates: start: 20090718
  4. LORTAB [Concomitant]
  5. OXYCONTIN [Concomitant]
     Dosage: 30 MG, DAILY (1/D)
  6. LEVOTHYROXINE [Concomitant]
     Dosage: 0.05 MG, DAILY (1/D)
  7. TIZANIDINE HCL [Concomitant]
     Dosage: 400 MG, DAILY (1/D)

REACTIONS (2)
  - DERMATITIS ALLERGIC [None]
  - SOMNOLENCE [None]
